FAERS Safety Report 9126084 (Version 1)
Quarter: 2013Q1

REPORT INFORMATION
  Report Type: Spontaneous
  Country: DE (occurrence: DE)
  Receive Date: 20130228
  Receipt Date: 20130228
  Transmission Date: 20140127
  Serious: Yes (Hospitalization)
  Sender: FDA-Public Use
  Company Number: DE-BIOGENIDEC-2013BI019253

PATIENT
  Age: 46 Year
  Sex: Female
  Weight: 55 kg

DRUGS (2)
  1. AVONEX [Suspect]
     Indication: MULTIPLE SCLEROSIS
     Route: 030
     Dates: start: 20040101, end: 20130130
  2. AVONEX [Suspect]
     Indication: MULTIPLE SCLEROSIS
     Route: 030
     Dates: start: 20130211

REACTIONS (5)
  - Contusion [Recovered/Resolved]
  - Haematoma [Recovered/Resolved]
  - Fall [Recovered/Resolved]
  - Weight decreased [Recovered/Resolved]
  - Spondylolisthesis [Recovered/Resolved]
